FAERS Safety Report 9215719 (Version 3)
Quarter: 2013Q2

REPORT INFORMATION
  Report Type: Spontaneous
  Country: BR (occurrence: BR)
  Receive Date: 20130408
  Receipt Date: 20130614
  Transmission Date: 20140414
  Serious: Yes (Hospitalization)
  Sender: FDA-Public Use
  Company Number: BR-BIOGENIDEC-2013BI030247

PATIENT
  Age: 48 Year
  Sex: Female

DRUGS (6)
  1. AVONEX [Suspect]
     Indication: MULTIPLE SCLEROSIS
     Route: 030
     Dates: start: 20100601, end: 20121106
  2. AVONEX [Suspect]
     Indication: MULTIPLE SCLEROSIS
     Route: 030
     Dates: start: 20130312, end: 20130323
  3. AVONEX [Suspect]
     Indication: MULTIPLE SCLEROSIS
     Route: 030
     Dates: start: 20130402
  4. ENALAPRIL MALEATE [Concomitant]
     Dates: start: 1998
  5. INDAPAMIDE [Concomitant]
     Dates: start: 1998
  6. PULSE THERAPY [Concomitant]
     Indication: PRODUCT USED FOR UNKNOWN INDICATION

REACTIONS (6)
  - Blood pressure abnormal [Unknown]
  - Multiple sclerosis relapse [Recovered/Resolved with Sequelae]
  - Gamma-glutamyltransferase abnormal [Recovered/Resolved]
  - Platelet count increased [Recovered/Resolved]
  - Gait disturbance [Unknown]
  - Coordination abnormal [Unknown]
